FAERS Safety Report 8095535-7 (Version None)
Quarter: 2012Q1

REPORT INFORMATION
  Report Type: 
  Country: None (occurrence: None)
  Receive Date: 20120129
  Receipt Date: 20111229
  Transmission Date: 20120608
  Serious: No
  Sender: FDA-Public Use
  Company Number: US-ABBOTT-11P-163-0887750-00

PATIENT
  Age: 22 Year
  Sex: Female

DRUGS (3)
  1. CLARITIN [Concomitant]
     Indication: SEASONAL ALLERGY
  2. HUMIRA [Suspect]
     Indication: CROHN'S DISEASE
     Dosage: LOADING DOSE
     Dates: start: 20111130, end: 20111130
  3. HUMIRA [Suspect]
     Dosage: LOADING DOSE
     Dates: start: 20111215, end: 20111215

REACTIONS (2)
  - INJECTION SITE PAIN [None]
  - ANXIETY [None]
